FAERS Safety Report 23491521 (Version 1)
Quarter: 2024Q1

REPORT INFORMATION
  Report Type: Spontaneous
  Country: JP (occurrence: JP)
  Receive Date: 20240207
  Receipt Date: 20240207
  Transmission Date: 20240410
  Serious: Yes (Other)
  Sender: FDA-Public Use
  Company Number: JP-CLGN-JP-CLI-2024-009387

PATIENT
  Age: 69 Year
  Sex: Male
  Weight: 70 kg

DRUGS (27)
  1. HYDROXYUREA [Suspect]
     Active Substance: HYDROXYUREA
     Indication: Essential thrombocythaemia
     Route: 048
  2. HEPARIN [Suspect]
     Active Substance: HEPARIN SODIUM
     Indication: Cardiac ventricular thrombosis
     Dosage: DAILY DOSE: 30000 IU (INTERNATIONAL UNIT)
     Route: 042
  3. HEPARIN [Suspect]
     Active Substance: HEPARIN SODIUM
     Indication: Anticoagulant therapy
     Dosage: DAILY DOSE: 30000 IU (INTERNATIONAL UNIT)
     Route: 042
  4. HEPARIN [Suspect]
     Active Substance: HEPARIN SODIUM
     Indication: Cardiac ventricular thrombosis
     Dosage: DAILY DOSE: 31000 IU (INTERNATIONAL UNIT)
     Route: 042
  5. HEPARIN [Suspect]
     Active Substance: HEPARIN SODIUM
     Indication: Anticoagulant therapy
     Dosage: DAILY DOSE: 31000 IU (INTERNATIONAL UNIT)
     Route: 042
  6. HEPARIN [Suspect]
     Active Substance: HEPARIN SODIUM
     Indication: Cardiac ventricular thrombosis
     Dosage: DAILY DOSE: 10000 IU (INTERNATIONAL UNIT)
     Route: 042
  7. HEPARIN [Suspect]
     Active Substance: HEPARIN SODIUM
     Indication: Anticoagulant therapy
     Dosage: DAILY DOSE: 10000 IU (INTERNATIONAL UNIT)
     Route: 042
  8. HEPARIN [Suspect]
     Active Substance: HEPARIN SODIUM
     Indication: Cardiac ventricular thrombosis
     Dosage: DAILY DOSE: 8000 IU (INTERNATIONAL UNIT)
     Route: 042
  9. HEPARIN [Suspect]
     Active Substance: HEPARIN SODIUM
     Indication: Anticoagulant therapy
     Dosage: DAILY DOSE: 8000 IU (INTERNATIONAL UNIT)
     Route: 042
  10. HEPARIN [Suspect]
     Active Substance: HEPARIN SODIUM
     Indication: Cardiac ventricular thrombosis
     Dosage: DAILY DOSE: 12000 IU (INTERNATIONAL UNIT)
     Route: 042
  11. HEPARIN [Suspect]
     Active Substance: HEPARIN SODIUM
     Indication: Anticoagulant therapy
     Dosage: DAILY DOSE: 12000 IU (INTERNATIONAL UNIT)
     Route: 042
  12. HEPARIN [Suspect]
     Active Substance: HEPARIN SODIUM
     Indication: Cardiac ventricular thrombosis
     Dosage: DAILY DOSE: 15000 IU (INTERNATIONAL UNIT)
     Route: 042
  13. HEPARIN [Suspect]
     Active Substance: HEPARIN SODIUM
     Indication: Anticoagulant therapy
     Dosage: DAILY DOSE: 15000 IU (INTERNATIONAL UNIT)
     Route: 042
  14. HEPARIN [Suspect]
     Active Substance: HEPARIN SODIUM
     Indication: Cardiac ventricular thrombosis
     Dosage: EVERY 4 TO 12 H
     Route: 042
  15. HEPARIN [Suspect]
     Active Substance: HEPARIN SODIUM
     Indication: Anticoagulant therapy
     Dosage: EVERY 4 TO 12 H
     Route: 042
  16. HEPARIN [Suspect]
     Active Substance: HEPARIN SODIUM
     Indication: Cardiac ventricular thrombosis
     Dosage: EVERY 4 TO 12 H
     Route: 042
  17. HEPARIN [Suspect]
     Active Substance: HEPARIN SODIUM
     Indication: Anticoagulant therapy
     Dosage: EVERY 4 TO 12 H
     Route: 042
  18. HEPARIN [Suspect]
     Active Substance: HEPARIN SODIUM
     Indication: Cardiac ventricular thrombosis
     Dosage: EVERY 4 TO 12 H
     Route: 042
  19. HEPARIN [Suspect]
     Active Substance: HEPARIN SODIUM
     Indication: Anticoagulant therapy
     Dosage: EVERY 4 TO 12 H
     Route: 042
  20. HEPARIN [Suspect]
     Active Substance: HEPARIN SODIUM
     Indication: Cardiac ventricular thrombosis
     Dosage: EVERY 4 TO 12 H
     Route: 042
  21. HEPARIN [Suspect]
     Active Substance: HEPARIN SODIUM
     Indication: Anticoagulant therapy
     Dosage: EVERY 4 TO 12 H
     Route: 042
  22. ASPIRIN ALUMINUM [Suspect]
     Active Substance: ASPIRIN ALUMINUM
     Indication: Essential thrombocythaemia
     Route: 048
  23. WARFARIN [Suspect]
     Active Substance: WARFARIN
     Route: 048
  24. ARGATROBAN [Suspect]
     Active Substance: ARGATROBAN
     Indication: Anticoagulant therapy
     Dosage: DAILY DOSE: 1 MILLIGRAM
     Route: 042
  25. ARGATROBAN [Suspect]
     Active Substance: ARGATROBAN
     Indication: Cardiac ventricular thrombosis
     Dosage: DAILY DOSE: 1 MILLIGRAM
     Route: 042
  26. ARGATROBAN [Suspect]
     Active Substance: ARGATROBAN
     Indication: Anticoagulant therapy
     Dosage: PAST DRUG?DAILY DOSE: 1 MILLIGRAM
     Route: 042
  27. ARGATROBAN [Suspect]
     Active Substance: ARGATROBAN
     Indication: Cardiac ventricular thrombosis
     Dosage: PAST DRUG?DAILY DOSE: 1 MILLIGRAM
     Route: 042

REACTIONS (1)
  - Cardiac tamponade [Recovering/Resolving]
